FAERS Safety Report 6125915-8 (Version None)
Quarter: 2009Q1

REPORT INFORMATION
  Report Type: 
  Country: None (occurrence: None)
  Receive Date: 20090320
  Receipt Date: 20090319
  Transmission Date: 20090719
  Serious: Yes (Death)
  Sender: FDA-Public Use
  Company Number: A0769007A

PATIENT
  Age: 73 Year
  Sex: Female

DRUGS (3)
  1. ALLI [Suspect]
     Route: 048
     Dates: start: 20070901
  2. PLAVIX [Concomitant]
     Indication: AORTIC ANEURYSM
  3. ANTIHYPERTENSIVE [Concomitant]

REACTIONS (5)
  - BRAIN STEM STROKE [None]
  - DRUG INEFFECTIVE [None]
  - INTRACRANIAL ANEURYSM [None]
  - THROMBOSIS [None]
  - VISION BLURRED [None]
